FAERS Safety Report 11744399 (Version 1)
Quarter: 2015Q4

REPORT INFORMATION
  Report Type: Spontaneous
  Country: US (occurrence: US)
  Receive Date: 20151116
  Receipt Date: 20151116
  Transmission Date: 20160304
  Serious: Yes (Death, Life-Threatening, Hospitalization, Other)
  Sender: FDA-Public Use
  Company Number: US-OTSUKA-2015_014408

PATIENT
  Age: 68 Year
  Sex: Male
  Weight: 68 kg

DRUGS (2)
  1. DACOGEN [Suspect]
     Active Substance: DECITABINE
     Dosage: 20 MG/M2, IN 1 CYCLICAL
     Route: 042
     Dates: start: 20120911, end: 20120915
  2. DACOGEN [Suspect]
     Active Substance: DECITABINE
     Indication: ACUTE MYELOID LEUKAEMIA
     Dosage: 20 MG/M2, IN 1 CYCLICAL COURSE 1, 28 DAY CYCLE, 20MG/M2 GIVEN OVER 60 MINUTES ON DAYS 1-10
     Route: 042
     Dates: start: 20120317

REACTIONS (3)
  - Neutrophil count decreased [Unknown]
  - Lung infection [Unknown]
  - Sepsis [Fatal]

NARRATIVE: CASE EVENT DATE: 20120917
